FAERS Safety Report 5571121-5 (Version None)
Quarter: 2007Q4

REPORT INFORMATION
  Report Type: 
  Country: None (occurrence: None)
  Receive Date: 20071221
  Receipt Date: 20071217
  Transmission Date: 20080405
  Serious: Yes (Hospitalization, Other)
  Sender: FDA-Public Use
  Company Number: US-MERCK-0712USA05940

PATIENT
  Age: 58 Year
  Sex: Male
  Weight: 106 kg

DRUGS (6)
  1. JANUVIA [Suspect]
     Indication: TYPE 2 DIABETES MELLITUS
     Route: 048
     Dates: start: 20070301, end: 20071129
  2. TRICOR [Concomitant]
     Indication: HYPERLIPIDAEMIA
     Route: 048
  3. VYTORIN [Concomitant]
     Indication: HYPERLIPIDAEMIA
     Route: 048
  4. AVAPRO [Concomitant]
     Route: 065
  5. METFORMIN [Concomitant]
     Indication: TYPE 2 DIABETES MELLITUS
     Route: 048
  6. ASPIRIN [Concomitant]
     Indication: HYPERLIPIDAEMIA
     Route: 048

REACTIONS (1)
  - PANCREATITIS [None]
